FAERS Safety Report 7112545-4 (Version None)
Quarter: 2010Q4

REPORT INFORMATION
  Report Type: 
  Country: None (occurrence: None)
  Receive Date: 20101119
  Receipt Date: 20101111
  Transmission Date: 20110411
  Serious: Yes (Hospitalization)
  Sender: FDA-Public Use
  Company Number: TR-ELI_LILLY_AND_COMPANY-TR201011003611

PATIENT
  Sex: Male
  Weight: 64 kg

DRUGS (3)
  1. GEMCITABINE HCL [Suspect]
     Indication: NON-SMALL CELL LUNG CANCER
     Dosage: 1250 MG/M2, 2 IN 3 WEEK
     Route: 042
     Dates: start: 20100128, end: 20100219
  2. CISPLATIN [Suspect]
     Indication: NON-SMALL CELL LUNG CANCER
     Dosage: 75 MG/M2, 1 IN3 WEEK
     Route: 042
     Dates: start: 20100128, end: 20100219
  3. CETUXIMAB [Suspect]
     Indication: NON-SMALL CELL LUNG CANCER
     Dosage: 250 MG, WEEKLY (1/W)
     Route: 042
     Dates: start: 20100128, end: 20100219

REACTIONS (1)
  - PERIPHERAL ISCHAEMIA [None]
